FAERS Safety Report 5176341-X (Version None)
Quarter: 2006Q4

REPORT INFORMATION
  Report Type: 
  Country: None (occurrence: None)
  Receive Date: 20061207
  Receipt Date: 20061122
  Transmission Date: 20070319
  Serious: Yes (Hospitalization)
  Sender: FDA-Public Use
  Company Number: 8020357

PATIENT
  Sex: Male

DRUGS (3)
  1. KEPPRA [Suspect]
  2. DILANTIN [Suspect]
  3. ZYPREXA [Suspect]

REACTIONS (1)
  - MULTIPLE DRUG OVERDOSE [None]
